FAERS Safety Report 4651717-5 (Version None)
Quarter: 2005Q2

REPORT INFORMATION
  Report Type: 
  Country: None (occurrence: None)
  Receive Date: 20050404
  Receipt Date: 20041122
  Transmission Date: 20051028
  Serious: No
  Sender: FDA-Public Use
  Company Number: USA041184614

PATIENT
  Sex: Female

DRUGS (2)
  1. CYMBALTA [Suspect]
     Indication: DIABETIC NEUROPATHY
     Dosage: 60 MG
  2. CYMBALTA [Suspect]
     Indication: PAIN
     Dosage: 60 MG

REACTIONS (3)
  - LIBIDO DECREASED [None]
  - PARAESTHESIA OF GENITAL FEMALE [None]
  - RESTLESS LEGS SYNDROME [None]
